FAERS Safety Report 16353408 (Version 1)
Quarter: 2019Q2

REPORT INFORMATION
  Report Type: Spontaneous
  Country: PT (occurrence: PT)
  Receive Date: 20190524
  Receipt Date: 20190524
  Transmission Date: 20190711
  Serious: Yes (Hospitalization, Other)
  Sender: FDA-Public Use
  Company Number: PT-MYLANLABS-2019M1048887

PATIENT
  Age: 52 Year
  Sex: Male

DRUGS (4)
  1. DEXAMETHASONE. [Concomitant]
     Active Substance: DEXAMETHASONE
     Indication: ANTIEMETIC SUPPORTIVE CARE
     Dosage: ADMINISTERED ON THE FIRST DAY OF EACH CYCLE
     Route: 065
  2. ONDANSETRON [Concomitant]
     Active Substance: ONDANSETRON
     Indication: ANTIEMETIC SUPPORTIVE CARE
     Dosage: ADMINISTERED ON THE FIRST DAY OF EACH CYCLE
     Route: 065
  3. CAPECITABINE. [Concomitant]
     Active Substance: CAPECITABINE
     Indication: COLORECTAL CANCER STAGE III
     Dosage: FOR 14 DAYS (SCHEDULED FOR EIGHT CYCLES).
     Route: 048
  4. OXALIPLATIN. [Suspect]
     Active Substance: OXALIPLATIN
     Indication: COLORECTAL CANCER STAGE III
     Dosage: ON THE FIRST DAY OF EACH CYCLE, WITH A PERIODICITY OF 3 WEEKS OVER 6 MONTHS (SCHEDULED FOR EIGHT ...
     Route: 041

REACTIONS (3)
  - Rhabdomyolysis [Recovered/Resolved]
  - Acute kidney injury [Recovered/Resolved]
  - Hyperkalaemia [Recovered/Resolved]
